FAERS Safety Report 6053873-3 (Version None)
Quarter: 2009Q1

REPORT INFORMATION
  Report Type: 
  Country: None (occurrence: None)
  Receive Date: 20090123
  Receipt Date: 20090115
  Transmission Date: 20090719
  Serious: Yes (Life-Threatening)
  Sender: FDA-Public Use
  Company Number: 2008-04743

PATIENT
  Age: 56 Year
  Sex: Male
  Weight: 59 kg

DRUGS (4)
  1. VELCADE [Suspect]
     Indication: MULTIPLE MYELOMA
     Dosage: 2.3 MG, INTRAVENOUS
     Route: 042
     Dates: start: 20080915, end: 20081203
  2. FENTANYL-100 [Concomitant]
  3. DEXAMETHASONE [Concomitant]
  4. PAMIDRONATE DISODIUM [Concomitant]

REACTIONS (3)
  - DRUG INEFFECTIVE [None]
  - MALIGNANT NEOPLASM PROGRESSION [None]
  - SWELLING FACE [None]
